FAERS Safety Report 10021871 (Version 1)
Quarter: 2014Q1

REPORT INFORMATION
  Report Type: Spontaneous
  Country: US (occurrence: US)
  Receive Date: 20140319
  Receipt Date: 20140319
  Transmission Date: 20141002
  Serious: Yes (Hospitalization)
  Sender: FDA-Public Use
  Company Number: US-BRISTOL-MYERS SQUIBB COMPANY-20386207

PATIENT
  Age: 74 Year
  Sex: Male

DRUGS (1)
  1. KENALOG-40 INJ [Suspect]
     Indication: EPIDIDYMITIS
     Dosage: MAY2011-3 INJECTIONS?2012-2 INJECTIONS?OCT 2013-2 INJECTIONS
     Dates: start: 201105

REACTIONS (5)
  - Adrenal insufficiency [Unknown]
  - Cellulitis [Unknown]
  - Weight decreased [Unknown]
  - Hypertension [Unknown]
  - Candida infection [Unknown]
